FAERS Safety Report 8081190-9 (Version None)
Quarter: 2012Q1

REPORT INFORMATION
  Report Type: 
  Country: None (occurrence: None)
  Receive Date: 20120130
  Receipt Date: 20120123
  Transmission Date: 20120608
  Serious: Yes (Other)
  Sender: FDA-Public Use
  Company Number: PT-GLAXOSMITHKLINE-B0777878A

PATIENT
  Age: 70 Year
  Sex: Male

DRUGS (2)
  1. FLUTICASONE PROPIONATE/SALMETEROL [Suspect]
     Indication: ASTHMA
     Route: 055
  2. SPIRIVA [Concomitant]
     Indication: ASTHMA
     Route: 065

REACTIONS (4)
  - FATIGUE [None]
  - ASTHMA [None]
  - DYSPNOEA [None]
  - PRODUCT QUALITY ISSUE [None]
